FAERS Safety Report 8105690-8 (Version None)
Quarter: 2012Q1

REPORT INFORMATION
  Report Type: 
  Country: None (occurrence: None)
  Receive Date: 20120201
  Receipt Date: 20120127
  Transmission Date: 20120608
  Serious: Yes (Life-Threatening, Hospitalization)
  Sender: FDA-Public Use
  Company Number: IT-ELI_LILLY_AND_COMPANY-IT201201003503

PATIENT
  Sex: Female

DRUGS (5)
  1. HUMALOG [Suspect]
     Indication: DIABETES MELLITUS
     Dosage: 25 IU, QD
     Route: 058
     Dates: start: 20050101, end: 20110101
  2. HUMALOG [Suspect]
     Dosage: UNK
     Route: 058
     Dates: start: 20110101
  3. AMLODIPINE [Concomitant]
     Dosage: UNK
  4. LANTUS [Concomitant]
     Indication: DIABETES MELLITUS
     Dosage: 10 IU, QD
     Route: 058
     Dates: start: 20050101
  5. LOSARTAN POTASSIUM [Concomitant]
     Dosage: UNK

REACTIONS (2)
  - HYPOGLYCAEMIC COMA [None]
  - DIABETIC KETOACIDOSIS [None]
